FAERS Safety Report 23650834 (Version 4)
Quarter: 2024Q2

REPORT INFORMATION
  Report Type: Spontaneous
  Country: DE (occurrence: None)
  Receive Date: 20240320
  Receipt Date: 20240419
  Transmission Date: 20240716
  Serious: Yes (Life-Threatening)
  Sender: FDA-Public Use
  Company Number: DE-ROCHE-3523523

PATIENT
  Age: 33 Year
  Sex: Female
  Weight: 43 kg

DRUGS (9)
  1. OCREVUS [Suspect]
     Active Substance: OCRELIZUMAB
     Indication: Relapsing-remitting multiple sclerosis
     Route: 042
     Dates: start: 20191002
  2. OCREVUS [Suspect]
     Active Substance: OCRELIZUMAB
     Dosage: 7TH CYCLE
     Route: 042
     Dates: start: 20221027
  3. OCREVUS [Suspect]
     Active Substance: OCRELIZUMAB
     Dosage: 8TH CYCLE
     Route: 042
     Dates: start: 20230424
  4. OCREVUS [Suspect]
     Active Substance: OCRELIZUMAB
     Dosage: 9TH CYCLE
     Route: 042
     Dates: start: 20231023
  5. ESCITALOPRAM [Concomitant]
     Active Substance: ESCITALOPRAM OXALATE
     Indication: Depression
     Route: 048
     Dates: end: 202401
  6. METHYLPREDNISOLONE [Concomitant]
     Active Substance: METHYLPREDNISOLONE
  7. CYCLOPHOSPHAMIDE [Concomitant]
     Active Substance: CYCLOPHOSPHAMIDE
     Dosage: 750 MG/ SQ.M BODY SURFACE
     Dates: start: 20240223
  8. FAVIPIRAVIR [Concomitant]
     Active Substance: FAVIPIRAVIR
     Dosage: 1200 MG/D
     Route: 048
     Dates: start: 20240306, end: 20240410
  9. RIBAVIRIN [Concomitant]
     Active Substance: RIBAVIRIN
     Dosage: 400 MG/D FOR 14 DAYS

REACTIONS (2)
  - Encephalitis autoimmune [Not Recovered/Not Resolved]
  - Coxsackie virus test positive [Unknown]

NARRATIVE: CASE EVENT DATE: 20231101
